FAERS Safety Report 9520720 (Version 1)
Quarter: 2013Q1

REPORT INFORMATION
  Report Type: Spontaneous
  Country: US (occurrence: None)
  Receive Date: 20130305
  Receipt Date: 20130305
  Transmission Date: 20140127
  Serious: Yes (Other)
  Sender: FDA-Public Use
  Company Number: 163-21880-12040020

PATIENT
  Age: 88 Year
  Sex: Male
  Weight: 65.8 kg

DRUGS (14)
  1. REVLIMID [Suspect]
     Indication: PLASMA CELL MYELOMA
     Dosage: 10 MG, 1 IN 1 D, PO
     Route: 048
     Dates: start: 20120224
  2. NORVASC (AMLODIPINE BESILATE) (UNKNOWN) [Concomitant]
  3. LEVOTHYROXINE (LEVOTHYROXINE) (UNKNOWN)? [Concomitant]
  4. OMEPRAZOLE (OMEPRAZOLE) (UNKNOWN)? [Concomitant]
  5. POTASSIUM CHLORIDE (POTASSIUM CHLORIDE) (UNKNOWN) [Concomitant]
  6. PLAVIX (CLOPIDOGREL SULFATE) (UNKNOWN) [Concomitant]
  7. LORTAB (VICODIN) (UNKNOWN) [Concomitant]
  8. LOSARTAN (LOSARTAN) (UNKNOWN) [Concomitant]
  9. VYTORIN (INEGY) (UNKNOWN) [Concomitant]
  10. ZOMETA (ZOLEDRONIC ACID) (UNKNOWN) [Concomitant]
  11. VELCADE [Concomitant]
  12. MVI (MVI) (UNKNOWN) [Concomitant]
  13. VITAMIN B-12 (CYANOCOBALAMIN) (UNKNOWN) [Concomitant]
  14. SAW PALMETTO (SERENOA REPENS) (UNKNOWN) [Concomitant]

REACTIONS (5)
  - Cardiac failure congestive [None]
  - Rash [None]
  - Blister [None]
  - Nasopharyngitis [None]
  - Cough [None]
